FAERS Safety Report 8565331-2 (Version None)
Quarter: 2012Q3

REPORT INFORMATION
  Report Type: 
  Country: None (occurrence: None)
  Receive Date: 20120723
  Receipt Date: 20120713
  Transmission Date: 20120928
  Serious: Yes (Other)
  Sender: FDA-Public Use
  Company Number: DSA_58535_2012

PATIENT

DRUGS (1)
  1. FLAGYL [Suspect]
     Indication: PRODUCT USED FOR UNKNOWN INDICATION
     Dosage: (DOUBLE THAN THE NORMAL PRESCRIBED DOSE TAKEN FOR LONGER PERIOD), (DF)

REACTIONS (4)
  - JAUNDICE [None]
  - NAUSEA [None]
  - HEPATITIS [None]
  - ACCIDENTAL OVERDOSE [None]
